FAERS Safety Report 8605099-4 (Version None)
Quarter: 2012Q3

REPORT INFORMATION
  Report Type: 
  Country: None (occurrence: None)
  Receive Date: 20120820
  Receipt Date: 20120816
  Transmission Date: 20120928
  Serious: Yes (Other)
  Sender: FDA-Public Use
  Company Number: US-PFIZER INC-2012201907

PATIENT
  Age: 83 Year
  Sex: Female
  Weight: 73.016 kg

DRUGS (3)
  1. ASPIRIN [Concomitant]
     Dosage: 81 MG, DAILY
  2. TIKOSYN [Suspect]
     Indication: HEART RATE IRREGULAR
     Dosage: 250 UG, UNK
     Dates: start: 20120701
  3. ZOCOR [Concomitant]
     Dosage: 20 MG, DAILY

REACTIONS (3)
  - TREMOR [None]
  - DISCOMFORT [None]
  - MUSCLE TWITCHING [None]
